FAERS Safety Report 9963940 (Version 2)
Quarter: 2014Q1

REPORT INFORMATION
  Report Type: Spontaneous
  Country: BE (occurrence: BE)
  Receive Date: 20140305
  Receipt Date: 20140305
  Transmission Date: 20141002
  Serious: Yes (Hospitalization)
  Sender: FDA-Public Use
  Company Number: BE-PFIZER INC-2014059986

PATIENT
  Sex: 0

DRUGS (3)
  1. PANTOMED [Suspect]
     Dosage: UNK
  2. ABILIFY [Interacting]
     Dosage: UNK
  3. SIPRALEXA [Interacting]
     Dosage: UNK

REACTIONS (3)
  - Drug interaction [Unknown]
  - Ataxia [Unknown]
  - Dizziness [Unknown]
